FAERS Safety Report 8578362-3 (Version None)
Quarter: 2012Q3

REPORT INFORMATION
  Report Type: 
  Country: None (occurrence: None)
  Receive Date: 20120726
  Receipt Date: 20120710
  Transmission Date: 20120928
  Serious: Yes (Other)
  Sender: FDA-Public Use
  Company Number: USA/USA/12/0023616

PATIENT
  Age: 72 Year
  Sex: Male

DRUGS (5)
  1. KLONOPIN [Concomitant]
  2. BYSTOLIC [Concomitant]
  3. BENICAR [Concomitant]
  4. ZOLOFT [Concomitant]
  5. OMEPRAZOLE MAGNESIUM [Suspect]
     Indication: DYSPEPSIA
     Dosage: 20.6 MG, ONCE, ORAL
     Route: 048
     Dates: start: 20120323

REACTIONS (2)
  - BLADDER CANCER [None]
  - URINE COLOUR ABNORMAL [None]
